FAERS Safety Report 9124500 (Version 1)
Quarter: 2013Q1

REPORT INFORMATION
  Report Type: Spontaneous
  Country: GB (occurrence: GB)
  Receive Date: 20130227
  Receipt Date: 20130227
  Transmission Date: 20140127
  Serious: Yes (Other)
  Sender: FDA-Public Use
  Company Number: GB-ROCHE-1195423

PATIENT
  Sex: 0

DRUGS (6)
  1. LUCENTIS [Suspect]
     Indication: PRODUCT USED FOR UNKNOWN INDICATION
     Route: 050
  2. FUROSEMIDE [Concomitant]
  3. TEGRETAL [Concomitant]
  4. SPIRONOLACTONE [Concomitant]
  5. WARFARIN [Concomitant]
  6. ADCAL [Concomitant]

REACTIONS (3)
  - Asthma [Unknown]
  - Oral candidiasis [Recovered/Resolved]
  - Malaise [Unknown]
